FAERS Safety Report 8524637-3 (Version None)
Quarter: 2012Q3

REPORT INFORMATION
  Report Type: 
  Country: None (occurrence: None)
  Receive Date: 20120720
  Receipt Date: 20120710
  Transmission Date: 20120928
  Serious: Yes (Hospitalization)
  Sender: FDA-Public Use
  Company Number: US-009507513-1206USA02876

PATIENT

DRUGS (3)
  1. INVANZ [Suspect]
     Indication: NEOPLASM
  2. TYLENOL [Concomitant]
     Indication: PAIN
  3. INVANZ [Suspect]
     Indication: SINUSITIS
     Dosage: 1 G, QD
     Route: 041

REACTIONS (3)
  - FALL [None]
  - HALLUCINATION, AUDITORY [None]
  - HALLUCINATION, VISUAL [None]
